FAERS Safety Report 23948741 (Version 3)
Quarter: 2024Q3

REPORT INFORMATION
  Report Type: Report from Study
  Country: US (occurrence: US)
  Receive Date: 20240607
  Receipt Date: 20240820
  Transmission Date: 20241017
  Serious: Yes (Hospitalization, Other)
  Sender: SANDOZ
  Company Number: US-002147023-NVSC2023US013766

PATIENT
  Sex: Female

DRUGS (5)
  1. TREPROSTINIL [Suspect]
     Active Substance: TREPROSTINIL
     Indication: Pulmonary arterial hypertension
     Dosage: 100NG/KG/MIN, CONT
     Route: 042
     Dates: start: 20211117
  2. TREPROSTINIL [Suspect]
     Active Substance: TREPROSTINIL
     Dosage: 100NG/KG/MIN, CONT
     Route: 042
     Dates: start: 202111
  3. AMBRISENTAN [Concomitant]
     Active Substance: AMBRISENTAN
     Indication: Product used for unknown indication
     Route: 065
  4. TADALAFIL [Concomitant]
     Active Substance: TADALAFIL
     Indication: Product used for unknown indication
     Dosage: UNK
     Route: 065
  5. TREPROSTINIL [Concomitant]
     Active Substance: TREPROSTINIL
     Indication: Product used for unknown indication
     Dosage: MDV,STER DIL SDV
     Route: 065

REACTIONS (11)
  - Hospitalisation [Unknown]
  - Thrombosis [Unknown]
  - Pulmonary arterial hypertension [Unknown]
  - Condition aggravated [Unknown]
  - Dyspnoea at rest [Unknown]
  - Loss of personal independence in daily activities [Unknown]
  - Mood altered [Unknown]
  - Peripheral swelling [Unknown]
  - Joint swelling [Unknown]
  - Fatigue [Unknown]
  - Dizziness [Unknown]
